FAERS Safety Report 21279162 (Version 4)
Quarter: 2022Q4

REPORT INFORMATION
  Report Type: Spontaneous
  Country: US (occurrence: US)
  Receive Date: 20220901
  Receipt Date: 20221213
  Transmission Date: 20230113
  Serious: No
  Sender: FDA-Public Use
  Company Number: US-LEO Pharma-345057

PATIENT
  Sex: Female

DRUGS (1)
  1. ADBRY [Suspect]
     Active Substance: TRALOKINUMAB-LDRM
     Indication: Dermatitis atopic
     Dosage: INITIAL DOSE NOT REPORTED THEN AT 300 MG EVERY TWO WEEKS UNDER THE SKIN
     Route: 058
     Dates: start: 20220511

REACTIONS (4)
  - Injection site pruritus [Recovered/Resolved]
  - Injection site papule [Recovered/Resolved]
  - Drug ineffective [Unknown]
  - Injection site erythema [Recovered/Resolved]
